FAERS Safety Report 5373972-9 (Version None)
Quarter: 2007Q2

REPORT INFORMATION
  Report Type: 
  Country: None (occurrence: None)
  Receive Date: 20070627
  Receipt Date: 20070618
  Transmission Date: 20071010
  Serious: Yes (Other)
  Sender: FDA-Public Use
  Company Number: S06-USA-05281-01

PATIENT
  Age: 42 Year
  Sex: Female

DRUGS (12)
  1. NAMENDA [Suspect]
     Indication: NEUROPATHY PERIPHERAL
     Dosage: 10 MG BID PO
     Route: 048
     Dates: start: 20060101, end: 20061213
  2. NAMENDA [Suspect]
     Indication: NEUROPATHY PERIPHERAL
     Dosage: 5 MG BID PO
     Route: 048
     Dates: start: 20061214, end: 20061220
  3. NAMENDA [Suspect]
     Indication: NEUROPATHY PERIPHERAL
     Dosage: 5 MG QD PO
     Route: 048
     Dates: start: 20061101, end: 20060101
  4. NAMENDA [Suspect]
     Indication: NEUROPATHY PERIPHERAL
     Dosage: 5 MG BID PO
     Route: 048
     Dates: start: 20060101, end: 20060101
  5. NAMENDA [Suspect]
     Indication: NEUROPATHY PERIPHERAL
     Dosage: 15 MG QD PO
     Route: 048
     Dates: start: 20060101, end: 20060101
  6. MS CONTIN [Suspect]
     Indication: COMPLEX REGIONAL PAIN SYNDROME
     Dosage: 15 MG QD PO
     Route: 048
     Dates: start: 20061001
  7. WARFARIN SODIUM [Concomitant]
  8. CRESTOR [Concomitant]
  9. DARVOCET [Concomitant]
  10. SPIRIVA [Concomitant]
  11. LEVOXYL [Concomitant]
  12. OXYGEN [Concomitant]

REACTIONS (7)
  - ABNORMAL BEHAVIOUR [None]
  - CONFUSIONAL STATE [None]
  - DISEASE PROGRESSION [None]
  - DRUG INTERACTION [None]
  - DYSPNOEA [None]
  - MOOD SWINGS [None]
  - NEUROPATHY PERIPHERAL [None]
